FAERS Safety Report 13132652 (Version 1)
Quarter: 2017Q1

REPORT INFORMATION
  Report Type: Spontaneous
  Country: US (occurrence: US)
  Receive Date: 20170120
  Receipt Date: 20170120
  Transmission Date: 20170428
  Serious: No
  Sender: FDA-Public Use
  Company Number: US-ASTRAZENECA-2017SE03388

PATIENT
  Age: 60 Year
  Sex: Male

DRUGS (31)
  1. EFFEXOR XR [Suspect]
     Active Substance: VENLAFAXINE HYDROCHLORIDE
     Route: 065
     Dates: end: 2008
  2. ZYPREXA [Concomitant]
     Active Substance: OLANZAPINE
     Dates: end: 2008
  3. SELZENTRY [Concomitant]
     Active Substance: MARAVIROC
     Route: 048
  4. POTASSIUM CIT [Concomitant]
     Route: 048
  5. NASONEX [Concomitant]
     Active Substance: MOMETASONE FUROATE
     Dosage: 2 SPRAYS IN EACH NOSTRILS TWICE DAILY
     Route: 045
  6. SEROQUEL [Suspect]
     Active Substance: QUETIAPINE FUMARATE
     Route: 048
     Dates: end: 2008
  7. NORVIR [Concomitant]
     Active Substance: RITONAVIR
     Dates: end: 2008
  8. VALACYCLOVIR [Concomitant]
     Active Substance: VALACYCLOVIR HYDROCHLORIDE
     Route: 048
  9. INDAPEMIDE [Concomitant]
     Route: 048
  10. NAPROXEN. [Suspect]
     Active Substance: NAPROXEN
     Route: 065
  11. VIREAD [Concomitant]
     Active Substance: TENOFOVIR DISOPROXIL FUMARATE
     Dates: end: 2008
  12. RISPERDONE [Concomitant]
     Active Substance: RISPERIDONE
     Dates: end: 2008
  13. TRIUMEQ [Concomitant]
     Active Substance: ABACAVIR SULFATE\DOLUTEGRAVIR SODIUM\LAMIVUDINE
     Dates: end: 2008
  14. ZOLPIDEM ER [Concomitant]
     Active Substance: ZOLPIDEM\ZOLPIDEM TARTRATE
     Route: 048
  15. OLOPATADINE HYDROCHLORIDE. [Concomitant]
     Active Substance: OLOPATADINE HYDROCHLORIDE
     Dosage: 2 SPRAYS IN EACH NOSTRILS TWICE DAILY
     Route: 045
  16. GABAPENTIN. [Concomitant]
     Active Substance: GABAPENTIN
     Dosage: 4 TABLET IN AM AND 5 TABLETS IN PM
     Route: 048
  17. OLANZAPINE. [Concomitant]
     Active Substance: OLANZAPINE
     Dates: end: 2008
  18. EPZICOM [Concomitant]
     Active Substance: ABACAVIR SULFATE\LAMIVUDINE
     Dosage: 600 MG, 1 TABLET DAILY
     Route: 048
  19. MIRTAZAPINE. [Concomitant]
     Active Substance: MIRTAZAPINE
     Dosage: 1 TABLET AT NIGHT AS NEEDED
     Route: 048
  20. HYDROXYZINE HCL [Concomitant]
     Active Substance: HYDROXYZINE HYDROCHLORIDE
     Dosage: 3 TABLET AT NIGHT AS NEEDED
     Route: 048
  21. ABILIFY [Concomitant]
     Active Substance: ARIPIPRAZOLE
     Dates: end: 2008
  22. ISENTRESS [Concomitant]
     Active Substance: RALTEGRAVIR POTASSIUM
     Route: 048
  23. LISINOPRIL. [Suspect]
     Active Substance: LISINOPRIL
     Route: 048
     Dates: end: 2008
  24. LYRICA [Suspect]
     Active Substance: PREGABALIN
     Route: 048
  25. GEODON [Suspect]
     Active Substance: ZIPRASIDONE HYDROCHLORIDE\ZIPRASIDONE MESYLATE
     Route: 065
     Dates: end: 2008
  26. CLINDAMYCIN. [Concomitant]
     Active Substance: CLINDAMYCIN
     Dates: end: 2008
  27. IPRATROPIUM BROMIDE. [Concomitant]
     Active Substance: IPRATROPIUM BROMIDE
     Dosage: 2 SPRAYS IN EACH NOSTRILS TWICE DAILY
     Route: 045
  28. ESCITALOPRAM [Concomitant]
     Active Substance: ESCITALOPRAM OXALATE
     Dates: end: 2008
  29. LAMICTAL [Concomitant]
     Active Substance: LAMOTRIGINE
     Dates: end: 2008
  30. SAPHRIS [Concomitant]
     Active Substance: ASENAPINE MALEATE
     Dates: end: 2008
  31. SERTRALINE [Concomitant]
     Active Substance: SERTRALINE HYDROCHLORIDE
     Dates: end: 2008

REACTIONS (6)
  - Malaise [Unknown]
  - Hallucination [Unknown]
  - Pruritus [Recovered/Resolved]
  - Panic attack [Recovered/Resolved]
  - Drug hypersensitivity [Unknown]
  - Nausea [Unknown]
